FAERS Safety Report 4411587-7 (Version None)
Quarter: 2004Q3

REPORT INFORMATION
  Report Type: 
  Country: None (occurrence: None)
  Receive Date: 20040730
  Receipt Date: 20040727
  Transmission Date: 20050211
  Serious: Yes (Death)
  Sender: FDA-Public Use
  Company Number: PHRM2004FR02432

PATIENT
  Age: 65 Year
  Sex: Male

DRUGS (3)
  1. ZOMETA [Suspect]
     Indication: METASTASES TO BONE
     Dosage: 4 MG, QMO
     Route: 042
  2. BI-PROFENID [Concomitant]
  3. NOVANTRONE ^LEDERLE^ [Concomitant]

REACTIONS (4)
  - BLOOD CREATININE INCREASED [None]
  - CHOLESTASIS [None]
  - PANCYTOPENIA [None]
  - RENAL FAILURE ACUTE [None]
